FAERS Safety Report 26155691 (Version 1)
Quarter: 2025Q4

REPORT INFORMATION
  Report Type: Spontaneous
  Country: US (occurrence: US)
  Receive Date: 20251215
  Receipt Date: 20251215
  Transmission Date: 20260118
  Serious: Yes (Other)
  Sender: ALKEM
  Company Number: US-ALKEM LABORATORIES LIMITED-US-ALKEM-2024-26228

PATIENT
  Age: 15 Month
  Sex: Male

DRUGS (2)
  1. TACROLIMUS [Suspect]
     Active Substance: TACROLIMUS
     Indication: Immunosuppressant drug therapy
     Dosage: UNK
     Route: 065
  2. Immunoglobulin [Concomitant]
     Indication: Immune thrombocytopenia
     Dosage: UNK
     Route: 042

REACTIONS (3)
  - Cytomegalovirus viraemia [Unknown]
  - Pneumocystis jirovecii pneumonia [Recovered/Resolved]
  - Splenomegaly [Recovering/Resolving]
